FAERS Safety Report 13102935 (Version 1)
Quarter: 2017Q1

REPORT INFORMATION
  Report Type: Spontaneous
  Country: DE (occurrence: DE)
  Receive Date: 20170110
  Receipt Date: 20170110
  Transmission Date: 20170428
  Serious: Yes (Other)
  Sender: FDA-Public Use
  Company Number: DE-PFIZER INC-2017003282

PATIENT
  Age: 33 Year
  Sex: Male
  Weight: 69 kg

DRUGS (1)
  1. VENLAFAXINE HCL [Suspect]
     Active Substance: VENLAFAXINE HYDROCHLORIDE
     Indication: DEPRESSION
     Dosage: 150 MG, UNK
     Route: 048
     Dates: start: 201602

REACTIONS (4)
  - Aggression [Unknown]
  - Helplessness [Unknown]
  - Suicidal ideation [Unknown]
  - Apathy [Unknown]

NARRATIVE: CASE EVENT DATE: 20161110
